FAERS Safety Report 9403131 (Version 1)
Quarter: 2013Q3

REPORT INFORMATION
  Report Type: Spontaneous
  Country: DK (occurrence: DK)
  Receive Date: 20130716
  Receipt Date: 20130716
  Transmission Date: 20140515
  Serious: Yes (Hospitalization)
  Sender: FDA-Public Use
  Company Number: DK-BAYER-2013-083267

PATIENT
  Age: 60 Year
  Sex: Female
  Weight: 61 kg

DRUGS (2)
  1. MIRENA [Suspect]
     Indication: MENOMETRORRHAGIA
     Dosage: 20 MCG/24HR, CONT
     Route: 015
     Dates: start: 201001, end: 20130507
  2. CODEINE PHOSPHATE HEMIHYDRATE [Concomitant]
     Indication: RESTLESS LEGS SYNDROME
     Dosage: 12.5 MG, UNK
     Route: 048

REACTIONS (11)
  - Memory impairment [Recovering/Resolving]
  - Cognitive disorder [Not Recovered/Not Resolved]
  - Disturbance in attention [Recovering/Resolving]
  - Insomnia [Recovering/Resolving]
  - Stress [Recovering/Resolving]
  - Mood altered [Recovering/Resolving]
  - Dysfunctional uterine bleeding [Recovering/Resolving]
  - Hormone level abnormal [Recovering/Resolving]
  - Headache [Recovering/Resolving]
  - Head discomfort [Recovering/Resolving]
  - Oedema peripheral [Recovering/Resolving]
